FAERS Safety Report 6961768-3 (Version None)
Quarter: 2010Q3

REPORT INFORMATION
  Report Type: 
  Country: None (occurrence: None)
  Receive Date: 20100901
  Receipt Date: 20100823
  Transmission Date: 20110219
  Serious: Yes (Other)
  Sender: FDA-Public Use
  Company Number: PE-ROCHE-723182

PATIENT
  Sex: Female
  Weight: 50 kg

DRUGS (6)
  1. ACTEMRA [Suspect]
     Indication: RHEUMATOID ARTHRITIS
     Route: 042
     Dates: start: 20100806
  2. DEFLAZACORT [Concomitant]
     Indication: RHEUMATOID ARTHRITIS
     Dates: start: 20080501
  3. METHOTREXATE [Concomitant]
     Indication: RHEUMATOID ARTHRITIS
     Dosage: DRUG REPORTED AS METROTEXATE
     Dates: start: 20080501
  4. ETORICOXIB [Concomitant]
     Indication: RHEUMATOID ARTHRITIS
     Dosage: DRUG REPORTED AS ETOEICOXIB
     Dates: start: 20080501
  5. RANITIDINA [Concomitant]
     Indication: GASTRIC DISORDER
     Dates: start: 20080501
  6. LEVOTHYROXINE [Concomitant]
     Indication: HYPOTHYROIDISM
     Dates: start: 20090401

REACTIONS (1)
  - RHEUMATOID ARTHRITIS [None]
